FAERS Safety Report 9645643 (Version 1)
Quarter: 2013Q4

REPORT INFORMATION
  Report Type: Spontaneous
  Country: US (occurrence: None)
  Receive Date: 20131024
  Receipt Date: 20131024
  Transmission Date: 20140711
  Serious: No
  Sender: FDA-Public Use
  Company Number: None

PATIENT
  Age: 37 Year
  Sex: Female

DRUGS (1)
  1. ENBREL 50 MG [Suspect]
     Indication: PSORIASIS
     Dosage: SUB Q
     Dates: start: 20130922

REACTIONS (3)
  - Ear infection [None]
  - Injection site erythema [None]
  - Injection site warmth [None]
